FAERS Safety Report 4548739-1 (Version None)
Quarter: 2004Q4

REPORT INFORMATION
  Report Type: 
  Country: None (occurrence: None)
  Receive Date: 20041220
  Receipt Date: 20031201
  Transmission Date: 20050328
  Serious: Yes (Hospitalization)
  Sender: FDA-Public Use
  Company Number: USA031253656

PATIENT
  Age: 78 Year
  Sex: Female
  Weight: 68 kg

DRUGS (3)
  1. HUMALOG [Suspect]
     Indication: DIABETES MELLITUS
     Dates: start: 20011101
  2. HUMULIN 70/30 [Suspect]
     Indication: DIABETES MELLITUS
     Dates: start: 19980101, end: 20011101
  3. LANTUS [Concomitant]

REACTIONS (2)
  - NEUROPATHY PERIPHERAL [None]
  - OVARIAN CANCER [None]
